FAERS Safety Report 7315182-1 (Version None)
Quarter: 2011Q1

REPORT INFORMATION
  Report Type: 
  Country: None (occurrence: None)
  Receive Date: 20110218
  Receipt Date: 20110218
  Transmission Date: 20110831
  Serious: Yes (Hospitalization)
  Sender: FDA-Public Use
  Company Number: None

PATIENT
  Sex: Female
  Weight: 73.9363 kg

DRUGS (2)
  1. AVASTIN [Suspect]
  2. RAD001 10MG NOVARATIS [Suspect]

REACTIONS (8)
  - PYREXIA [None]
  - ENTEROCOCCUS TEST POSITIVE [None]
  - DYSPNOEA [None]
  - ANXIETY [None]
  - GAIT DISTURBANCE [None]
  - FALL [None]
  - TOXIC NEUROPATHY [None]
  - ASTHENIA [None]
